FAERS Safety Report 15640769 (Version 1)
Quarter: 2018Q4

REPORT INFORMATION
  Report Type: Spontaneous
  Country: GB (occurrence: GB)
  Receive Date: 20181120
  Receipt Date: 20181120
  Transmission Date: 20190205
  Serious: Yes (Other)
  Sender: FDA-Public Use
  Company Number: GB-ESPERO PHARMACEUTICALS-ESP201811-000044

PATIENT
  Weight: .65 kg

DRUGS (1)
  1. NITROGLYCERIN. [Suspect]
     Active Substance: NITROGLYCERIN
     Dosage: THREE PATCHES APPLIED OVER THE 48-HOUR PERIOD

REACTIONS (2)
  - Ischaemia [Recovered/Resolved]
  - Methaemoglobinaemia [Recovering/Resolving]
